FAERS Safety Report 21116566 (Version 2)
Quarter: 2022Q3

REPORT INFORMATION
  Report Type: Spontaneous
  Country: GB (occurrence: GB)
  Receive Date: 20220722
  Receipt Date: 20220919
  Transmission Date: 20221027
  Serious: Yes (Other)
  Sender: FDA-Public Use
  Company Number: GB-BIOGEN-2022BI01090526

PATIENT
  Sex: Female

DRUGS (3)
  1. DALFAMPRIDINE [Suspect]
     Active Substance: DALFAMPRIDINE
     Indication: Gait disturbance
     Dosage: 12 HOURS APART
     Route: 050
     Dates: start: 20211224
  2. COPAXONE [Concomitant]
     Active Substance: GLATIRAMER ACETATE
     Indication: Multiple sclerosis
     Route: 050
  3. MIRABEGRON [Concomitant]
     Active Substance: MIRABEGRON
     Indication: Multiple sclerosis
     Route: 050

REACTIONS (6)
  - Spinal fracture [Unknown]
  - Gait disturbance [Unknown]
  - Mobility decreased [Unknown]
  - Fall [Recovered/Resolved]
  - COVID-19 [Unknown]
  - Bladder disorder [Unknown]
